FAERS Safety Report 18130472 (Version 2)
Quarter: 2020Q3

REPORT INFORMATION
  Report Type: Spontaneous
  Country: US (occurrence: US)
  Receive Date: 20200810
  Receipt Date: 20200813
  Transmission Date: 20201103
  Serious: Yes (Other)
  Sender: FDA-Public Use
  Company Number: US-GLAXOSMITHKLINE-US2020153241

PATIENT
  Sex: Male

DRUGS (1)
  1. VOLTAREN ARTHRITIS PAIN [Suspect]
     Active Substance: DICLOFENAC SODIUM
     Indication: PRODUCT USED FOR UNKNOWN INDICATION
     Dosage: UNK UNK, BID
     Dates: start: 20200803, end: 20200805

REACTIONS (6)
  - Inappropriate schedule of product administration [Unknown]
  - Hallucination [Unknown]
  - Adverse drug reaction [Unknown]
  - Off label use [Unknown]
  - Asthenia [Unknown]
  - Feeling drunk [Unknown]
